FAERS Safety Report 25492217 (Version 2)
Quarter: 2025Q4

REPORT INFORMATION
  Report Type: Spontaneous
  Country: US (occurrence: US)
  Receive Date: 20250630
  Receipt Date: 20251028
  Transmission Date: 20260119
  Serious: Yes (Hospitalization, Other)
  Sender: HIKMA
  Company Number: US-HIKMA PHARMACEUTICALS USA INC.-US-H14001-25-07803

PATIENT
  Sex: Female

DRUGS (5)
  1. CLOTRIMAZOLE TROCHE [Suspect]
     Active Substance: CLOTRIMAZOLE
     Indication: Constipation
     Dosage: 1 DOSAGE FORM, 5 TIMES A DAY FOR 10 DAYS
     Route: 060
  2. CLOTRIMAZOLE TROCHE [Suspect]
     Active Substance: CLOTRIMAZOLE
     Indication: Diarrhoea
  3. CLOTRIMAZOLE TROCHE [Suspect]
     Active Substance: CLOTRIMAZOLE
     Indication: Candida infection
  4. CLOTRIMAZOLE TROCHE [Suspect]
     Active Substance: CLOTRIMAZOLE
     Indication: Urinary tract infection
  5. AMOXICILLIN\CLAVULANIC ACID [Concomitant]
     Active Substance: AMOXICILLIN\CLAVULANIC ACID
     Indication: Product used for unknown indication
     Dosage: 2 TABLET PER DAY FOR 2 WEEKS
     Route: 065

REACTIONS (4)
  - Skin lesion [Recovered/Resolved]
  - Breath odour [Recovered/Resolved]
  - Drug interaction [Recovered/Resolved]
  - Product taste abnormal [Recovered/Resolved]
